FAERS Safety Report 5843601-6 (Version None)
Quarter: 2008Q3

REPORT INFORMATION
  Report Type: 
  Country: None (occurrence: None)
  Receive Date: 20080813
  Receipt Date: 20080626
  Transmission Date: 20090109
  Serious: No
  Sender: FDA-Public Use
  Company Number: A0731956A

PATIENT
  Age: 69 Year
  Sex: Male
  Weight: 103.2 kg

DRUGS (7)
  1. COREG CR [Suspect]
     Indication: DRUG USE FOR UNKNOWN INDICATION
     Dosage: 10MG PER DAY
     Route: 048
     Dates: start: 20080530, end: 20080604
  2. AZATHIOPRINE [Concomitant]
     Dosage: 75MG PER DAY
  3. FUROSEMIDE [Concomitant]
     Dosage: 40MG PER DAY
  4. GABAPENTIN [Concomitant]
     Dosage: 600MG TWICE PER DAY
  5. LISINOPRIL [Concomitant]
     Dosage: 30MG PER DAY
  6. OMEPRAZOLE [Concomitant]
     Dosage: 20MG PER DAY
  7. SIMVASTATIN [Concomitant]
     Dosage: 80MG PER DAY

REACTIONS (1)
  - RASH MACULO-PAPULAR [None]
